FAERS Safety Report 16258755 (Version 2)
Quarter: 2019Q2

REPORT INFORMATION
  Report Type: Report from Study
  Country: None (occurrence: IL)
  Receive Date: 20190430
  Receipt Date: 20190522
  Transmission Date: 20190711
  Serious: Yes (Death, Hospitalization)
  Sender: FDA-Public Use
  Company Number: IL-ABBVIE-19S-082-2763190-00

PATIENT
  Age: 80 Year
  Sex: Male

DRUGS (4)
  1. DUODOPA [Suspect]
     Active Substance: CARBIDOPA\LEVODOPA
     Dosage: CURRENT: MD 13ML, CD 3.5ML/HOUR, ED 2ML
     Route: 050
  2. FLAGYL [Concomitant]
     Active Substance: METRONIDAZOLE\METRONIDAZOLE HYDROCHLORIDE
     Indication: PRODUCT USED FOR UNKNOWN INDICATION
  3. DUODOPA [Suspect]
     Active Substance: CARBIDOPA\LEVODOPA
     Indication: PARKINSON^S DISEASE
     Route: 050
     Dates: start: 20180729
  4. ROCEPHIN [Concomitant]
     Active Substance: CEFTRIAXONE SODIUM
     Indication: PRODUCT USED FOR UNKNOWN INDICATION

REACTIONS (10)
  - General physical health deterioration [Fatal]
  - Parkinson^s disease [Unknown]
  - Pupillary reflex impaired [Unknown]
  - Inflammatory marker increased [Fatal]
  - Loss of consciousness [Fatal]
  - Dysphagia [Fatal]
  - Dementia [Unknown]
  - Somnolence [Fatal]
  - Pneumonia [Fatal]
  - Mydriasis [Unknown]

NARRATIVE: CASE EVENT DATE: 20190429
